FAERS Safety Report 6866125-6 (Version None)
Quarter: 2010Q3

REPORT INFORMATION
  Report Type: 
  Country: None (occurrence: None)
  Receive Date: 20100722
  Receipt Date: 20100715
  Transmission Date: 20110219
  Serious: Yes (Other)
  Sender: FDA-Public Use
  Company Number: US-JNJFOC-20100601187

PATIENT
  Sex: Female
  Weight: 52.16 kg

DRUGS (5)
  1. SANDOZ FENTANYL TRANSDERMAL SYSTEM [Suspect]
     Indication: PAIN
     Route: 062
  2. SANDOZ FENTANYL TRANSDERMAL SYSTEM [Suspect]
     Route: 062
  3. HYDROCODONE [Concomitant]
     Indication: PAIN
     Dosage: DOSE: 10/650 MG/ I EVERY 4 TO 6 HOURS AS NEEDED
     Route: 048
  4. NUCYNTA [Concomitant]
     Indication: MUSCLE RELAXANT THERAPY
     Dosage: DOSAGE: 1 EVERY 4 TO 6 HOURS
     Route: 048
  5. NUCYNTA [Concomitant]
     Indication: PAIN
     Dosage: DOSAGE: 1 EVERY 4 TO 6 HOURS
     Route: 048

REACTIONS (10)
  - ABNORMAL LOSS OF WEIGHT [None]
  - DERMAL CYST [None]
  - EATING DISORDER [None]
  - FOOT FRACTURE [None]
  - MULTIPLE SCLEROSIS RELAPSE [None]
  - PRODUCT ADHESION ISSUE [None]
  - PRODUCT QUALITY ISSUE [None]
  - SCAR [None]
  - SCOLIOSIS [None]
  - WRONG TECHNIQUE IN DRUG USAGE PROCESS [None]
